FAERS Safety Report 4486823-1 (Version None)
Quarter: 2004Q4

REPORT INFORMATION
  Report Type: 
  Country: None (occurrence: None)
  Receive Date: 20041022
  Receipt Date: 20041007
  Transmission Date: 20050328
  Serious: Yes (Hospitalization)
  Sender: FDA-Public Use
  Company Number: 239732

PATIENT
  Age: 43 Year
  Sex: Female

DRUGS (1)
  1. VAGIFEM [Suspect]
     Indication: VAGINAL DISORDER
     Dosage: 0.025 MG, BIW, PER ORAL
     Route: 048
     Dates: start: 20010901, end: 20020301

REACTIONS (10)
  - BREAST PAIN [None]
  - CHOKING [None]
  - FEELING ABNORMAL [None]
  - HEADACHE [None]
  - INFECTION [None]
  - LYMPHADENOPATHY [None]
  - MUSCLE CRAMP [None]
  - NECROSIS [None]
  - NIPPLE PAIN [None]
  - RETCHING [None]
